FAERS Safety Report 9118524 (Version 1)
Quarter: 2013Q1

REPORT INFORMATION
  Report Type: Spontaneous
  Country: US (occurrence: US)
  Receive Date: 20130226
  Receipt Date: 20130226
  Transmission Date: 20140127
  Serious: Yes (Other)
  Sender: FDA-Public Use
  Company Number: US-SANOFI-AVENTIS-2013SA017020

PATIENT
  Age: 66 Year
  Sex: Male

DRUGS (5)
  1. LANTUS SOLOSTAR [Suspect]
     Indication: TYPE 2 DIABETES MELLITUS
     Dosage: DOSE:20 UNIT(S)
     Route: 051
  2. LANTUS SOLOSTAR [Suspect]
     Indication: TYPE 2 DIABETES MELLITUS
     Dosage: 65 TO 70 U DAILY DOSE:65 UNIT(S)
     Route: 051
     Dates: start: 2011
  3. SOLOSTAR [Suspect]
     Indication: TYPE 2 DIABETES MELLITUS
     Dates: start: 2011
  4. HUMALOG [Concomitant]
     Dosage: DOSE:10 UNIT(S)
     Dates: start: 20130219
  5. GLYBURIDE [Concomitant]

REACTIONS (14)
  - Vascular graft [Unknown]
  - Blood glucose increased [Unknown]
  - Drug ineffective [Unknown]
  - Thirst [Unknown]
  - Polyuria [Unknown]
  - Flushing [Unknown]
  - Asthenia [Unknown]
  - Headache [Unknown]
  - Weight decreased [Unknown]
  - Blood glucose decreased [Unknown]
  - Fatigue [Unknown]
  - Injection site pain [Unknown]
  - Incorrect storage of drug [Unknown]
  - Pain in extremity [Unknown]
